FAERS Safety Report 5903366-6 (Version None)
Quarter: 2008Q3

REPORT INFORMATION
  Report Type: 
  Country: None (occurrence: None)
  Receive Date: 20080930
  Receipt Date: 20080924
  Transmission Date: 20090109
  Serious: Yes (Other)
  Sender: FDA-Public Use
  Company Number: CA-ASTRAZENECA-2008UW19434

PATIENT
  Age: 58 Year
  Sex: Female

DRUGS (3)
  1. ENTOCORT ENEMA [Suspect]
     Indication: COLITIS
     Route: 054
     Dates: start: 20080828
  2. LEVOTHYROXINE SODIUM [Concomitant]
     Route: 048
  3. UNSPECIFIED DIURETIC [Concomitant]

REACTIONS (3)
  - BLOOD URINE PRESENT [None]
  - DRUG INEFFECTIVE [None]
  - POLLAKIURIA [None]
